FAERS Safety Report 15696454 (Version 1)
Quarter: 2018Q4

REPORT INFORMATION
  Report Type: Spontaneous
  Country: GB (occurrence: GB)
  Receive Date: 20181206
  Receipt Date: 20181206
  Transmission Date: 20190205
  Serious: Yes (Disabling)
  Sender: FDA-Public Use
  Company Number: GB-ELI_LILLY_AND_COMPANY-GB200906006262

PATIENT
  Age: 73 Year
  Sex: Male
  Weight: 81.6 kg

DRUGS (10)
  1. FOLIC ACID. [Concomitant]
     Active Substance: FOLIC ACID
     Indication: SUPPORTIVE CARE
     Dosage: 400 UG, DAILY
     Route: 048
     Dates: start: 20090403
  2. ONDANSETRON [Concomitant]
     Active Substance: ONDANSETRON
     Dosage: 8 MG, UNKNOWN
     Route: 042
     Dates: start: 20090410, end: 20090716
  3. METOCLOPRAMIDE. [Concomitant]
     Active Substance: METOCLOPRAMIDE
     Indication: SUPPORTIVE CARE
     Dosage: 10 MG, 3/D
     Route: 048
     Dates: start: 20090410, end: 20090716
  4. ALIMTA [Suspect]
     Active Substance: PEMETREXED DISODIUM
     Indication: MESOTHELIOMA
     Dosage: 1000 MG, UNKNOWN
     Route: 042
     Dates: start: 20090410, end: 20090716
  5. METOCLOPRAMIDE. [Concomitant]
     Active Substance: METOCLOPRAMIDE
     Dosage: 10 MG, 3/D
     Route: 048
     Dates: start: 20090410, end: 20090617
  6. DEXAMETHASONE. [Concomitant]
     Active Substance: DEXAMETHASONE
     Dosage: 4 MG, 2/D
     Route: 048
     Dates: start: 20090410, end: 20090717
  7. HYDROCORTISONE. [Concomitant]
     Active Substance: HYDROCORTISONE
     Dosage: 200 MG, UNK
     Route: 042
  8. HYDROXOCOBALAMIN [Concomitant]
     Active Substance: HYDROXOCOBALAMIN
     Indication: SUPPORTIVE CARE
     Dosage: 1 MG, WEEKLY (1/W)
     Route: 030
     Dates: start: 20090403
  9. CARBOPLATIN. [Concomitant]
     Active Substance: CARBOPLATIN
     Indication: MESOTHELIOMA
     Dosage: 660 MG, UNKNOWN
     Route: 042
     Dates: start: 20090410, end: 20090425
  10. CARBOPLATIN. [Concomitant]
     Active Substance: CARBOPLATIN
     Dosage: 660 MG, UNKNOWN
     Route: 042
     Dates: start: 20090410, end: 20090625

REACTIONS (3)
  - Abdominal pain upper [Recovered/Resolved]
  - Pruritus [Unknown]
  - Flushing [Recovered/Resolved]

NARRATIVE: CASE EVENT DATE: 20090625
